FAERS Safety Report 16176083 (Version 1)
Quarter: 2019Q2

REPORT INFORMATION
  Report Type: Spontaneous
  Country: FR (occurrence: FR)
  Receive Date: 20190409
  Receipt Date: 20190409
  Transmission Date: 20190711
  Serious: Yes (Hospitalization)
  Sender: FDA-Public Use
  Company Number: FR-MYLANLABS-2019M1032871

PATIENT
  Age: 33 Year
  Sex: Male

DRUGS (4)
  1. TERCIAN                            /00759301/ [Suspect]
     Active Substance: CYAMEMAZINE
     Indication: CHILDHOOD PSYCHOSIS
     Dosage: UNK
     Route: 048
     Dates: end: 201412
  2. LEPTICUR [Concomitant]
     Active Substance: TROPATEPINE HYDROCHLORIDE
     Indication: CHILDHOOD PSYCHOSIS
     Dosage: 30 MILLIGRAM
     Route: 048
  3. LEPONEX [Suspect]
     Active Substance: CLOZAPINE
     Indication: CHILDHOOD PSYCHOSIS
     Dosage: UNK
     Route: 048
     Dates: end: 201412
  4. XEROQUEL [Suspect]
     Active Substance: QUETIAPINE FUMARATE
     Indication: CHILDHOOD PSYCHOSIS
     Dosage: UNK
     Route: 048
     Dates: end: 201412

REACTIONS (2)
  - Dyskinesia [Recovering/Resolving]
  - Extrapyramidal disorder [Recovering/Resolving]

NARRATIVE: CASE EVENT DATE: 2013
